FAERS Safety Report 10198729 (Version 1)
Quarter: 2014Q2

REPORT INFORMATION
  Report Type: Spontaneous
  Country: US (occurrence: None)
  Receive Date: 20140523
  Receipt Date: 20140523
  Transmission Date: 20141212
  Serious: No
  Sender: FDA-Public Use
  Company Number: None

PATIENT
  Age: 34 Year
  Sex: Female

DRUGS (1)
  1. CONCERTA [Suspect]
     Indication: ATTENTION DEFICIT/HYPERACTIVITY DISORDER
     Dosage: 2 PILLS ONCE DAILY TAKEN BY MOUTH
     Route: 048
     Dates: start: 20140301, end: 20140522

REACTIONS (5)
  - Disturbance in attention [None]
  - Drug ineffective [None]
  - Anxiety [None]
  - Depression [None]
  - Product substitution issue [None]
